FAERS Safety Report 16768635 (Version 2)
Quarter: 2020Q3

REPORT INFORMATION
  Report Type: Spontaneous
  Country: NO (occurrence: NO)
  Receive Date: 20190903
  Receipt Date: 20200724
  Transmission Date: 20201102
  Serious: Yes (Disabling)
  Sender: FDA-Public Use
  Company Number: NO-OTSUKA-2019_004400

PATIENT
  Age: 23 Year
  Sex: Female

DRUGS (3)
  1. ABILIFY MAINTENA [Suspect]
     Active Substance: ARIPIPRAZOLE
     Indication: SCHIZOPHRENIA
     Dosage: 400 MG EVERY 4 WEEK
     Route: 065
     Dates: start: 2015, end: 201901
  2. ABILIFY [Suspect]
     Active Substance: ARIPIPRAZOLE
     Indication: SCHIZOPHRENIA
     Dosage: UNK
     Route: 065
     Dates: start: 201303
  3. SEROQUEL [Concomitant]
     Active Substance: QUETIAPINE FUMARATE
     Indication: SLEEP DISORDER
     Dosage: 25?75 MG EACH DAY
     Route: 065
     Dates: start: 2012

REACTIONS (2)
  - Head titubation [Not Recovered/Not Resolved]
  - Torticollis [Not Recovered/Not Resolved]

NARRATIVE: CASE EVENT DATE: 2017
